FAERS Safety Report 6548903-6 (Version None)
Quarter: 2010Q1

REPORT INFORMATION
  Report Type: 
  Country: None (occurrence: None)
  Receive Date: 20100125
  Receipt Date: 20100114
  Transmission Date: 20100710
  Serious: Yes (Hospitalization)
  Sender: FDA-Public Use
  Company Number: FR-BIOGENIDEC-2009BI041771

PATIENT
  Age: 42 Year
  Sex: Female
  Weight: 128 kg

DRUGS (11)
  1. TYSABRI [Suspect]
     Indication: MULTIPLE SCLEROSIS
     Route: 042
     Dates: start: 20071127, end: 20090904
  2. TYSABRI [Suspect]
     Route: 042
     Dates: start: 20091030
  3. LYRICA [Concomitant]
     Indication: CONVULSION
     Route: 048
     Dates: start: 20060901
  4. CERIS [Concomitant]
     Indication: URINARY TRACT DISORDER
     Route: 048
  5. EFFEXOR [Concomitant]
     Indication: DEPRESSION
     Route: 048
     Dates: start: 20080701
  6. VASTAREL [Concomitant]
     Indication: CARDIOVASCULAR DISORDER
     Route: 048
  7. NOZINAN [Concomitant]
     Indication: DEPRESSION
     Route: 048
     Dates: start: 20080301
  8. SERESTA [Concomitant]
     Indication: DEPRESSION
     Route: 048
  9. ANAFRANIL [Concomitant]
     Indication: DEPRESSION
     Route: 048
     Dates: start: 20070701
  10. NEXIUM [Concomitant]
     Indication: GASTRIN SECRETION DISORDER
     Route: 048
  11. TAHOR [Concomitant]
     Indication: DYSLIPIDAEMIA
     Route: 048

REACTIONS (3)
  - ANAEMIA [None]
  - OBESITY [None]
  - OBESITY SURGERY [None]
